FAERS Safety Report 7063336-4 (Version None)
Quarter: 2010Q4

REPORT INFORMATION
  Report Type: 
  Country: None (occurrence: None)
  Receive Date: 20101026
  Receipt Date: 20091026
  Transmission Date: 20110411
  Serious: No
  Sender: FDA-Public Use
  Company Number: US-ABBOTT-09P-163-0605708-00

PATIENT
  Sex: Female
  Weight: 66.738 kg

DRUGS (2)
  1. LUPRON DEPOT [Suspect]
     Indication: ENDOMETRIOSIS
     Dates: start: 20060101, end: 20060101
  2. LUPRON DEPOT [Suspect]
     Dates: start: 20091020

REACTIONS (4)
  - ABDOMINAL DISCOMFORT [None]
  - AMENORRHOEA [None]
  - HEADACHE [None]
  - MALAISE [None]
